FAERS Safety Report 10242875 (Version 3)
Quarter: 2014Q2

REPORT INFORMATION
  Report Type: Report from Study
  Country: AU (occurrence: AU)
  Receive Date: 20140618
  Receipt Date: 20140627
  Transmission Date: 20141212
  Serious: Yes (Hospitalization)
  Sender: FDA-Public Use
  Company Number: AU-ROCHE-1419779

PATIENT
  Sex: Female

DRUGS (1)
  1. ACTEMRA [Suspect]
     Indication: RHEUMATOID ARTHRITIS
     Dosage: FREQUENCY: APPROXIMATELY EVERY 28 DAYS;
     Route: 042
     Dates: start: 20131104

REACTIONS (4)
  - Myocardial infarction [Recovered/Resolved]
  - Asthma [Not Recovered/Not Resolved]
  - Emphysema [Not Recovered/Not Resolved]
  - Renal impairment [Recovered/Resolved]
